FAERS Safety Report 18586081 (Version 4)
Quarter: 2022Q1

REPORT INFORMATION
  Report Type: Report from Study
  Country: BR (occurrence: BR)
  Receive Date: 20201207
  Receipt Date: 20220112
  Transmission Date: 20220424
  Serious: Yes (Life-Threatening, Other)
  Sender: FDA-Public Use
  Company Number: NVSC2020BR325143

PATIENT
  Age: 81 Year
  Sex: Male

DRUGS (2)
  1. AMLODIPINE\VALSARTAN [Suspect]
     Active Substance: AMLODIPINE\VALSARTAN
     Indication: Hypertension
     Dosage: 1 DF, BID (START DATE:MORE THAN 20 YEARS AGO)
     Route: 065
     Dates: end: 20211007
  2. ENTRESTO [Suspect]
     Active Substance: SACUBITRIL\VALSARTAN
     Indication: Product used for unknown indication
     Dosage: UNK
     Route: 065

REACTIONS (15)
  - Near death experience [Unknown]
  - Arterial occlusive disease [Unknown]
  - Blood cholesterol abnormal [Unknown]
  - Cardiomegaly [Unknown]
  - Aphasia [Unknown]
  - Dry skin [Unknown]
  - Fall [Unknown]
  - Upper limb fracture [Unknown]
  - Clavicle fracture [Unknown]
  - Movement disorder [Unknown]
  - Feeling abnormal [Unknown]
  - Hypoacusis [Unknown]
  - Gastritis [Unknown]
  - Flatulence [Unknown]
  - Mental disorder [Unknown]

NARRATIVE: CASE EVENT DATE: 20200911
